FAERS Safety Report 7215391-6 (Version None)
Quarter: 2011Q1

REPORT INFORMATION
  Report Type: 
  Country: None (occurrence: None)
  Receive Date: 20110107
  Receipt Date: 20101217
  Transmission Date: 20110831
  Serious: Yes (Life-Threatening, Hospitalization)
  Sender: FDA-Public Use
  Company Number: DK-NOVOPROD-321120

PATIENT
  Age: 59 Year
  Sex: Male
  Weight: 100 kg

DRUGS (2)
  1. VICTOZA [Suspect]
     Indication: TYPE 2 DIABETES MELLITUS
     Dosage: 0.6 MG, QD
     Route: 058
     Dates: start: 20101019, end: 20101112
  2. ANTIHYPERTENSIVES [Concomitant]

REACTIONS (4)
  - NAUSEA [None]
  - HYPERGLYCAEMIA [None]
  - DECREASED APPETITE [None]
  - VOMITING [None]
